FAERS Safety Report 20199541 (Version 4)
Quarter: 2022Q2

REPORT INFORMATION
  Report Type: Report from Study
  Country: JP (occurrence: JP)
  Receive Date: 20211217
  Receipt Date: 20220402
  Transmission Date: 20220721
  Serious: Yes (Hospitalization)
  Sender: FDA-Public Use
  Company Number: JP-JNJFOC-A-CH2017-149022

PATIENT
  Age: 73 Year
  Sex: Female

DRUGS (7)
  1. OPSUMIT [Suspect]
     Active Substance: MACITENTAN
     Indication: Pulmonary arterial hypertension
     Dosage: 10 MG, QD   IN THE MORNING
     Route: 048
     Dates: start: 20170114
  2. EDOXABAN TOSYLATE [Suspect]
     Active Substance: EDOXABAN TOSYLATE
     Indication: Product used for unknown indication
     Dosage: DOSE UNKNOWN
     Route: 048
     Dates: start: 20180124, end: 20201221
  3. BERAPROST SODIUM [Concomitant]
     Active Substance: BERAPROST SODIUM
     Indication: Pulmonary arterial hypertension
     Route: 048
     Dates: start: 20160513, end: 20160909
  4. BERAPROST SODIUM [Concomitant]
     Active Substance: BERAPROST SODIUM
     Route: 048
     Dates: start: 20160910
  5. NIFEDIPINE [Concomitant]
     Active Substance: NIFEDIPINE
     Indication: Pulmonary arterial hypertension
     Route: 048
     Dates: start: 20160513, end: 20161129
  6. ADCIRCA [Concomitant]
     Active Substance: TADALAFIL
     Indication: Pulmonary arterial hypertension
     Route: 048
     Dates: start: 20161129
  7. OXYGEN [Concomitant]
     Active Substance: OXYGEN
     Route: 055

REACTIONS (5)
  - Large intestinal ulcer [Recovering/Resolving]
  - Anaemia [Recovering/Resolving]
  - Gastrointestinal haemorrhage [Recovered/Resolved]
  - Platelet count decreased [Recovered/Resolved]
  - Pyrexia [Recovered/Resolved]

NARRATIVE: CASE EVENT DATE: 20170116
